FAERS Safety Report 12914274 (Version 2)
Quarter: 2016Q4

REPORT INFORMATION
  Report Type: Spontaneous
  Country: US (occurrence: US)
  Receive Date: 20161106
  Receipt Date: 20161129
  Transmission Date: 20170207
  Serious: Yes (Hospitalization, Other)
  Sender: FDA-Public Use
  Company Number: US-BRISTOL-MYERS SQUIBB COMPANY-BMS-2016-093123

PATIENT
  Age: 88 Year
  Sex: Male

DRUGS (3)
  1. ASPIRIN. [Suspect]
     Active Substance: ASPIRIN
     Indication: PRODUCT USED FOR UNKNOWN INDICATION
     Route: 065
  2. CLOPIDOGREL [Suspect]
     Active Substance: CLOPIDOGREL BISULFATE
     Indication: PRODUCT USED FOR UNKNOWN INDICATION
     Route: 065
  3. APIXABAN [Suspect]
     Active Substance: APIXABAN
     Indication: CEREBROVASCULAR ACCIDENT PROPHYLAXIS
     Route: 065

REACTIONS (10)
  - Haemorrhagic ascites [Recovered/Resolved]
  - Cholecystitis [Recovered/Resolved]
  - Cholecystectomy [Recovering/Resolving]
  - Contraindicated product administered [Unknown]
  - Transfusion [Unknown]
  - Gallbladder perforation [Recovered/Resolved]
  - Gastrointestinal wall thickening [Recovered/Resolved]
  - Pleural effusion [Recovered/Resolved]
  - Aspiration pleural cavity [Unknown]
  - Haematoma evacuation [Recovering/Resolving]
